FAERS Safety Report 7628340-3 (Version None)
Quarter: 2011Q3

REPORT INFORMATION
  Report Type: 
  Country: None (occurrence: None)
  Receive Date: 20110722
  Receipt Date: 20110715
  Transmission Date: 20111222
  Serious: Yes (Life-Threatening, Hospitalization)
  Sender: FDA-Public Use
  Company Number: US-JNJFOC-20110706945

PATIENT
  Age: 30 Year
  Sex: Male

DRUGS (4)
  1. ULTRAM [Suspect]
     Indication: PRODUCT USED FOR UNKNOWN INDICATION
     Route: 065
  2. ANTICONVULSANT [Concomitant]
  3. CLOZAPINE [Concomitant]
  4. AMPHETAMINES [Concomitant]

REACTIONS (6)
  - MIOSIS [None]
  - DYSARTHRIA [None]
  - TOXICITY TO VARIOUS AGENTS [None]
  - PNEUMONIA [None]
  - ASPIRATION [None]
  - DRUG ABUSE [None]
